FAERS Safety Report 11824491 (Version 1)
Quarter: 2015Q4

REPORT INFORMATION
  Report Type: Spontaneous
  Country: US (occurrence: US)
  Receive Date: 20151210
  Receipt Date: 20151210
  Transmission Date: 20160305
  Serious: Yes (Other)
  Sender: FDA-Public Use
  Company Number: US-MYLANLABS-2015M1043094

PATIENT

DRUGS (1)
  1. EPIPEN [Suspect]
     Active Substance: EPINEPHRINE
     Dosage: UNK
     Dates: start: 20150906, end: 20150906

REACTIONS (8)
  - Injection site pain [Recovered/Resolved]
  - Wrong technique in product usage process [Recovered/Resolved]
  - Blood pressure increased [Recovered/Resolved]
  - Accidental exposure to product [Recovered/Resolved]
  - Injection site bruising [Recovered/Resolved]
  - Injury associated with device [Recovered/Resolved]
  - Heart rate increased [Recovered/Resolved]
  - Injection site ischaemia [Recovered/Resolved]

NARRATIVE: CASE EVENT DATE: 20150906
